FAERS Safety Report 7589812-3 (Version None)
Quarter: 2011Q3

REPORT INFORMATION
  Report Type: 
  Country: None (occurrence: None)
  Receive Date: 20110705
  Receipt Date: 20110623
  Transmission Date: 20111222
  Serious: Yes (Hospitalization)
  Sender: FDA-Public Use
  Company Number: JP-SANOFI-AVENTIS-2011SA001285

PATIENT
  Age: 70 Year
  Sex: Male

DRUGS (12)
  1. AMLODIPINE BESYLATE [Concomitant]
  2. KYTRIL [Concomitant]
     Dates: start: 20100430, end: 20100807
  3. LENDORMIN [Concomitant]
     Dates: start: 20100530, end: 20100812
  4. OXALIPLATIN [Suspect]
     Indication: RECTAL CANCER METASTATIC
     Route: 041
     Dates: start: 20100430, end: 20100430
  5. OXALIPLATIN [Suspect]
     Route: 041
  6. CANDESARTAN CILEXETIL [Concomitant]
  7. OXALIPLATIN [Suspect]
     Route: 041
     Dates: start: 20100806, end: 20100806
  8. FAMOTIDINE [Concomitant]
     Dates: start: 20100430, end: 20101007
  9. CHLOR-TRIMETON [Concomitant]
     Dates: start: 20100430, end: 20100806
  10. DEXAMETHASONE [Concomitant]
     Dates: start: 20100430, end: 20100806
  11. CAPECITABINE [Suspect]
     Indication: RECTAL CANCER METASTATIC
     Route: 048
     Dates: start: 20100430, end: 20100812
  12. EMEND [Concomitant]
     Dates: start: 20100430, end: 20100808

REACTIONS (2)
  - URINARY RETENTION [None]
  - POSTRENAL FAILURE [None]
